FAERS Safety Report 4303318-6 (Version None)
Quarter: 2004Q1

REPORT INFORMATION
  Report Type: 
  Country: None (occurrence: None)
  Receive Date: 20040223
  Receipt Date: 20040212
  Transmission Date: 20041129
  Serious: Yes (Death)
  Sender: FDA-Public Use
  Company Number: 2004198851FR

PATIENT
  Sex: Female

DRUGS (1)
  1. DIPENTUM [Suspect]
     Indication: COLITIS ULCERATIVE
     Dosage: 1 DF, QD, ORAL
     Route: 048
     Dates: start: 20030428

REACTIONS (3)
  - COMPLICATIONS OF MATERNAL EXPOSURE TO THERAPEUTIC DRUGS [None]
  - DRUG EXPOSURE DURING PREGNANCY [None]
  - INTRA-UTERINE DEATH [None]
